FAERS Safety Report 5734263-7 (Version None)
Quarter: 2008Q2

REPORT INFORMATION
  Report Type: 
  Country: None (occurrence: None)
  Receive Date: 20080512
  Receipt Date: 20080501
  Transmission Date: 20081010
  Serious: Yes (Other)
  Sender: FDA-Public Use
  Company Number: US-JNJFOC-20080501040

PATIENT
  Sex: Female
  Weight: 66.23 kg

DRUGS (8)
  1. FENTANYL TRANSDERMAL SYSTEM [Suspect]
     Indication: FIBROMYALGIA
     Route: 062
  2. AMOXICILLIN [Concomitant]
     Indication: SINUSITIS
     Route: 048
  3. OXYCODONE HCL [Concomitant]
     Indication: BREAKTHROUGH PAIN
     Dosage: 5/325MG
     Route: 048
  4. AMBIEN [Concomitant]
     Indication: SLEEP DISORDER
     Route: 048
  5. SOMA [Concomitant]
     Indication: PAIN
     Route: 048
  6. PREMARIN [Concomitant]
     Indication: HYSTERECTOMY
     Route: 048
  7. ALLEGRA [Concomitant]
     Indication: SINUSITIS
     Route: 048
  8. ALPRAZOLAM [Concomitant]
     Indication: ANXIETY
     Route: 048

REACTIONS (2)
  - HEART VALVE INCOMPETENCE [None]
  - WRONG TECHNIQUE IN DRUG USAGE PROCESS [None]
